FAERS Safety Report 17399520 (Version 2)
Quarter: 2020Q1

REPORT INFORMATION
  Report Type: Report from Study
  Country: None (occurrence: US)
  Receive Date: 20200211
  Receipt Date: 20200303
  Transmission Date: 20200409
  Serious: Yes (Other)
  Sender: FDA-Public Use
  Company Number: US-ABBVIE-19K-163-2916631-00

PATIENT
  Sex: Female

DRUGS (3)
  1. HUMIRA [Suspect]
     Active Substance: ADALIMUMAB
     Indication: PSORIATIC ARTHROPATHY
     Route: 058
     Dates: start: 20190819, end: 20200210
  2. HUMIRA [Suspect]
     Active Substance: ADALIMUMAB
     Indication: PSORIASIS
  3. HUMIRA [Suspect]
     Active Substance: ADALIMUMAB
     Indication: RHEUMATOID ARTHRITIS
     Route: 058
     Dates: start: 202002

REACTIONS (12)
  - Frustration tolerance decreased [Unknown]
  - Haemorrhage [Unknown]
  - Diplopia [Unknown]
  - Night sweats [Unknown]
  - Depression [Unknown]
  - Psoriasis [Unknown]
  - Suicidal ideation [Recovered/Resolved]
  - Skin irritation [Recovering/Resolving]
  - Burning sensation [Unknown]
  - Ocular procedural complication [Unknown]
  - Weight increased [Unknown]
  - Nasopharyngitis [Not Recovered/Not Resolved]

NARRATIVE: CASE EVENT DATE: 2019
